FAERS Safety Report 16618458 (Version 1)
Quarter: 2019Q3

REPORT INFORMATION
  Report Type: Spontaneous
  Country: GB (occurrence: GB)
  Receive Date: 20190723
  Receipt Date: 20190723
  Transmission Date: 20191004
  Serious: Yes (Death, Other)
  Sender: FDA-Public Use
  Company Number: GB-MYLANLABS-2019M1068565

PATIENT
  Sex: Female

DRUGS (3)
  1. CISPLATIN. [Suspect]
     Active Substance: CISPLATIN
     Indication: OVARIAN GERM CELL TUMOUR
     Dosage: 50 MG/100ML INJECTION
     Route: 065
  2. BLEOMYCIN [Suspect]
     Active Substance: BLEOMYCIN SULFATE
     Indication: OVARIAN GERM CELL TUMOUR
     Dosage: 15 MG INJECTION
     Route: 065
  3. LASTET [Suspect]
     Active Substance: ETOPOSIDE
     Indication: OVARIAN GERM CELL TUMOUR
     Dosage: 100 MG/5ML
     Route: 065

REACTIONS (6)
  - Intentional product misuse [Unknown]
  - Product use in unapproved indication [Unknown]
  - Toxicity to various agents [Fatal]
  - Overdose [Unknown]
  - Drug abuse [Unknown]
  - Acute lymphocytic leukaemia [Fatal]
